FAERS Safety Report 20763759 (Version 2)
Quarter: 2022Q2

REPORT INFORMATION
  Report Type: Spontaneous
  Country: US (occurrence: US)
  Receive Date: 20220428
  Receipt Date: 20220510
  Transmission Date: 20220721
  Serious: Yes (Hospitalization, Other)
  Sender: FDA-Public Use
  Company Number: US-RECORDATI RARE DISEASE INC.-2022001606

PATIENT
  Age: 44 Year
  Sex: Female

DRUGS (2)
  1. PANHEMATIN [Suspect]
     Active Substance: HEMIN
     Indication: Porphyria acute
     Dosage: UNK
     Route: 042
     Dates: start: 2012
  2. GIVLAARI [Suspect]
     Active Substance: GIVOSIRAN SODIUM
     Indication: Porphyria acute
     Dosage: UNK
     Route: 065

REACTIONS (4)
  - Porphyria acute [Recovering/Resolving]
  - Dyspnoea [Not Recovered/Not Resolved]
  - Heart rate abnormal [Not Recovered/Not Resolved]
  - Headache [Not Recovered/Not Resolved]

NARRATIVE: CASE EVENT DATE: 20220401
